FAERS Safety Report 23944011 (Version 1)
Quarter: 2024Q2

REPORT INFORMATION
  Report Type: Spontaneous
  Country: AU (occurrence: AU)
  Receive Date: 20240606
  Receipt Date: 20240606
  Transmission Date: 20240715
  Serious: Yes (Other)
  Sender: FDA-Public Use
  Company Number: AU-SANDOZ-SDZ2024AU054772

PATIENT
  Age: 64 Year
  Sex: Female

DRUGS (9)
  1. ALBENDAZOLE [Suspect]
     Active Substance: ALBENDAZOLE
     Indication: Hypereosinophilic syndrome
     Dosage: 400 MG, BID INTERVAL: 2 DAY(OR 4 WEEKS)
     Route: 065
  2. DEXAMETHASONE [Suspect]
     Active Substance: DEXAMETHASONE
     Indication: Hypereosinophilic syndrome
     Dosage: 4 MG, BID(INTERVAL: 2 DAY)FOR 10 WEEKS
     Route: 065
  3. IVERMECTIN [Suspect]
     Active Substance: IVERMECTIN
     Indication: Hypereosinophilic syndrome
     Dosage: 200 MG, BID(INTERVAL: 2 DAY)
     Route: 048
  4. IVERMECTIN [Suspect]
     Active Substance: IVERMECTIN
     Dosage: 200 UG/KG(FOR TWO CONSECUTIVE DAYS, WITH A REPEAT DOSE AFTER 14 DAYS))
     Route: 065
  5. MYCOPHENOLATE MOFETIL [Suspect]
     Active Substance: MYCOPHENOLATE MOFETIL
     Dosage: 1 G, BID
     Route: 065
  6. MYCOPHENOLATE MOFETIL [Suspect]
     Active Substance: MYCOPHENOLATE MOFETIL
     Indication: Hypereosinophilic syndrome
     Dosage: 1 G, BID(INTERVAL: 2 DAY)
     Route: 065
  7. MEPOLIZUMAB [Suspect]
     Active Substance: MEPOLIZUMAB
     Indication: Hypereosinophilic syndrome
     Dosage: 300 MG, QMO( INTERVAL: 1 MONTH)(1 DOSE 4 WEEKS)
     Route: 065
     Dates: start: 202201
  8. PREDNISOLONE [Suspect]
     Active Substance: PREDNISOLONE
     Indication: Eosinophilic pneumonia
     Dosage: 25 MG, QD( INTERVAL: 1 DAY)
     Route: 065
  9. PREDNISOLONE [Suspect]
     Active Substance: PREDNISOLONE
     Dosage: 50 MG, QD(TAPER)
     Route: 065

REACTIONS (5)
  - Memory impairment [Unknown]
  - Neuropsychological symptoms [Unknown]
  - Depression [Unknown]
  - Drug ineffective [Unknown]
  - Off label use [Unknown]
